FAERS Safety Report 5683149-5 (Version None)
Quarter: 2008Q1

REPORT INFORMATION
  Report Type: 
  Country: None (occurrence: None)
  Receive Date: 20080326
  Receipt Date: 20080310
  Transmission Date: 20080703
  Serious: Yes (Hospitalization)
  Sender: FDA-Public Use
  Company Number: CHPA2008US05130

PATIENT
  Age: 47 Year
  Sex: Female

DRUGS (2)
  1. ACETYLSALICYLIC ACID (NCH)(ACETYLSALICYLIC ACID) TABLET [Suspect]
     Dosage: 325 MG, QD, ORAL
  2. LOVENOX [Suspect]
     Dosage: 40 MG, QD, SUBCUTANEOUS
     Route: 058

REACTIONS (8)
  - ARTERIOSCLEROSIS [None]
  - ASTHENIA [None]
  - CAROTID ARTERY DISSECTION [None]
  - CAROTID ARTERY STENOSIS [None]
  - CEREBROVASCULAR ACCIDENT [None]
  - DRUG INEFFECTIVE [None]
  - HEMIPARESIS [None]
  - HYPOAESTHESIA [None]
